FAERS Safety Report 4409397-X (Version None)
Quarter: 2004Q3

REPORT INFORMATION
  Report Type: 
  Country: None (occurrence: None)
  Receive Date: 20040722
  Receipt Date: 20040712
  Transmission Date: 20050211
  Serious: Yes (Hospitalization)
  Sender: FDA-Public Use
  Company Number: 2004223478US

PATIENT
  Age: 67 Year
  Sex: Male

DRUGS (1)
  1. DAYPRO [Suspect]
     Indication: ARTHRALGIA
     Dosage: ORAL
     Route: 048

REACTIONS (1)
  - CHILLS [None]
